FAERS Safety Report 9056037 (Version 2)
Quarter: 2013Q1

REPORT INFORMATION
  Report Type: Spontaneous
  Country: DE (occurrence: DE)
  Receive Date: 20130205
  Receipt Date: 20130301
  Transmission Date: 20140127
  Serious: Yes (Other)
  Sender: FDA-Public Use
  Company Number: DE-JNJFOC-20130111008

PATIENT
  Age: 16 None
  Sex: Female
  Weight: 77 kg

DRUGS (1)
  1. RISPERDAL CONSTA [Suspect]
     Indication: SCHIZOPHRENIA, PARANOID TYPE
     Route: 030
     Dates: start: 201104, end: 20130118

REACTIONS (2)
  - Pituitary tumour benign [Unknown]
  - Vertigo [Unknown]
